FAERS Safety Report 20017306 (Version 2)
Quarter: 2021Q4

REPORT INFORMATION
  Report Type: Report from Study
  Country: PH (occurrence: PH)
  Receive Date: 20211030
  Receipt Date: 20211112
  Transmission Date: 20220303
  Serious: Yes (Hospitalization, Other)
  Sender: FDA-Public Use
  Company Number: PH-NOVARTISPH-NVSC2021PH239071

PATIENT
  Age: 72 Year
  Sex: Female

DRUGS (6)
  1. ALPELISIB [Suspect]
     Active Substance: ALPELISIB
     Indication: Breast cancer
     Dosage: 200 MG
     Route: 048
     Dates: start: 20210423, end: 20210921
  2. TAMOXIFEN [Concomitant]
     Active Substance: TAMOXIFEN
     Indication: Hormone therapy
     Dosage: 20 MG
     Route: 065
     Dates: start: 202012, end: 20210504
  3. GABAPENTIN [Concomitant]
     Active Substance: GABAPENTIN
     Indication: Pain
     Dosage: 600 MG
     Route: 065
     Dates: start: 2014, end: 20210825
  4. LINAGLIPTIN [Concomitant]
     Active Substance: LINAGLIPTIN
     Indication: Diabetes mellitus
     Dosage: 500 MG (2.5 MG)
     Route: 065
     Dates: start: 2021, end: 20210825
  5. METFORMIN [Concomitant]
     Active Substance: METFORMIN HYDROCHLORIDE
     Indication: Diabetes mellitus
     Dosage: 500 MG
     Route: 065
     Dates: start: 2010, end: 20210427
  6. LETROZOLE [Concomitant]
     Active Substance: LETROZOLE
     Indication: Product used for unknown indication
     Dosage: 2.5 MG, QD
     Route: 065
     Dates: start: 20210504

REACTIONS (6)
  - Asthenia [Unknown]
  - Pneumonia [Unknown]
  - Pancreatitis [Recovered/Resolved]
  - Amylase increased [Recovered/Resolved]
  - Lipase increased [Recovered/Resolved]
  - Hyperchlorhydria [Unknown]

NARRATIVE: CASE EVENT DATE: 20210922
